FAERS Safety Report 6680800-8 (Version None)
Quarter: 2010Q2

REPORT INFORMATION
  Report Type: 
  Country: None (occurrence: None)
  Receive Date: 20100414
  Receipt Date: 20100407
  Transmission Date: 20101027
  Serious: Yes (Life-Threatening)
  Sender: FDA-Public Use
  Company Number: PHHY2010BR21722

PATIENT
  Age: 58 Year
  Sex: Female

DRUGS (2)
  1. FORASEQ [Suspect]
  2. MIFLONIDE [Suspect]
     Dosage: UNK

REACTIONS (4)
  - APPARENT DEATH [None]
  - DRUG INEFFECTIVE [None]
  - DYSPNOEA [None]
  - FEELING ABNORMAL [None]
